FAERS Safety Report 5527170-6 (Version None)
Quarter: 2007Q4

REPORT INFORMATION
  Report Type: 
  Country: None (occurrence: None)
  Receive Date: 20071121
  Receipt Date: 20071109
  Transmission Date: 20080405
  Serious: Yes (Life-Threatening, Other)
  Sender: FDA-Public Use
  Company Number: DEP_00097_2007

PATIENT
  Sex: Female
  Weight: 122.4712 kg

DRUGS (2)
  1. GLUMETZA [Suspect]
     Indication: DIABETES MELLITUS
     Dosage: (1000 MG BID ORAL)
     Route: 048
     Dates: start: 20061212, end: 20070302
  2. GLIPIZIDE [Concomitant]

REACTIONS (7)
  - ALANINE AMINOTRANSFERASE INCREASED [None]
  - BLOOD CHOLESTEROL INCREASED [None]
  - BLOOD GLUCOSE INCREASED [None]
  - BLOOD TRIGLYCERIDES INCREASED [None]
  - LOW DENSITY LIPOPROTEIN INCREASED [None]
  - PSORIASIS [None]
  - WHITE BLOOD CELL COUNT INCREASED [None]
